FAERS Safety Report 4294071-3 (Version None)
Quarter: 2004Q1

REPORT INFORMATION
  Report Type: 
  Country: None (occurrence: None)
  Receive Date: 20040211
  Receipt Date: 20040127
  Transmission Date: 20041129
  Serious: Yes (Other)
  Sender: FDA-Public Use
  Company Number: AU_040107391

PATIENT
  Age: 70 Year
  Sex: Female

DRUGS (1)
  1. GEMCITABINE HYDROCHLORIDE-IV (GEMCITABINE) [Suspect]
     Indication: CARCINOMA
     Dosage: 1000 MG/M2/OTHER
     Route: 050

REACTIONS (4)
  - HEPATITIS B [None]
  - NEUTROPENIA [None]
  - THROMBOCYTOPENIA [None]
  - VIRAL LOAD INCREASED [None]
